FAERS Safety Report 25429763 (Version 2)
Quarter: 2025Q3

REPORT INFORMATION
  Report Type: Spontaneous
  Country: CA (occurrence: CA)
  Receive Date: 20250612
  Receipt Date: 20250714
  Transmission Date: 20251020
  Serious: Yes (Other)
  Sender: AMERICAN REGENT
  Company Number: CA-AMERICAN REGENT INC-2025002361

PATIENT
  Age: 24 Year
  Sex: Female

DRUGS (2)
  1. VENOFER [Suspect]
     Active Substance: IRON SUCROSE
     Indication: Iron deficiency anaemia
     Route: 065
     Dates: start: 20241225, end: 20241225
  2. VENOFER [Suspect]
     Active Substance: IRON SUCROSE
     Dates: start: 20250101, end: 20250101

REACTIONS (5)
  - Urticaria [Unknown]
  - Musculoskeletal discomfort [Unknown]
  - Musculoskeletal chest pain [Unknown]
  - Peripheral swelling [Unknown]
  - Ill-defined disorder [Unknown]

NARRATIVE: CASE EVENT DATE: 20241225
